FAERS Safety Report 5979878-6 (Version None)
Quarter: 2008Q4

REPORT INFORMATION
  Report Type: 
  Country: None (occurrence: None)
  Receive Date: 20081205
  Receipt Date: 20081124
  Transmission Date: 20090506
  Serious: Yes (Hospitalization, Other)
  Sender: FDA-Public Use
  Company Number: US-BIOGENIDEC-2008BI014158

PATIENT
  Age: 47 Year
  Sex: Female
  Weight: 72 kg

DRUGS (5)
  1. TYSABRI [Suspect]
     Indication: MULTIPLE SCLEROSIS
     Route: 042
     Dates: start: 20080225, end: 20081001
  2. DETROL [Concomitant]
  3. PRAVASTATIN [Concomitant]
     Indication: BLOOD CHOLESTEROL INCREASED
  4. AMANTADINE HCL [Concomitant]
  5. TRIAMTERENE [Concomitant]
     Indication: HYPERTENSION

REACTIONS (4)
  - COGNITIVE DISORDER [None]
  - IMPAIRED DRIVING ABILITY [None]
  - MULTIPLE SCLEROSIS [None]
  - TREMOR [None]
